FAERS Safety Report 9701372 (Version 1)
Quarter: 2013Q4

REPORT INFORMATION
  Report Type: Spontaneous
  Country: US (occurrence: US)
  Receive Date: 20131121
  Receipt Date: 20131121
  Transmission Date: 20140711
  Serious: No
  Sender: FDA-Public Use
  Company Number: US-GILEAD-2008-0016659

PATIENT
  Sex: Female
  Weight: 86.18 kg

DRUGS (17)
  1. LETAIRIS [Suspect]
     Indication: PULMONARY ARTERIAL HYPERTENSION
     Route: 048
     Dates: start: 20080414
  2. REVATIO [Concomitant]
     Route: 048
  3. DIGOXIN [Concomitant]
     Route: 048
  4. DEMADEX [Concomitant]
     Route: 048
  5. ATENOLOL [Concomitant]
     Route: 048
  6. PREDNISONE [Concomitant]
     Route: 048
  7. PROTONIX [Concomitant]
     Route: 048
  8. SYNTHROID [Concomitant]
     Route: 048
  9. ULTRACET [Concomitant]
     Route: 048
  10. EVISTA [Concomitant]
     Route: 048
  11. ALLOPURINOL [Concomitant]
     Route: 048
  12. COUMADIN [Concomitant]
     Route: 048
  13. CLARINEX [Concomitant]
     Route: 048
  14. CALCIUM [Concomitant]
     Route: 048
  15. POTASSIUM CHLORIDE [Concomitant]
     Route: 048
  16. VITAMIN B COMPLEX [Concomitant]
     Route: 048
  17. VITAMIN C [Concomitant]
     Route: 048

REACTIONS (1)
  - Fluid retention [Unknown]
